FAERS Safety Report 20872164 (Version 4)
Quarter: 2022Q3

REPORT INFORMATION
  Report Type: Spontaneous
  Country: EC (occurrence: EC)
  Receive Date: 20220525
  Receipt Date: 20220817
  Transmission Date: 20221027
  Serious: Yes (Hospitalization, Other)
  Sender: FDA-Public Use
  Company Number: EC-BoehringerIngelheim-2022-BI-170108

PATIENT
  Age: 93 Year
  Sex: Male
  Weight: 46 kg

DRUGS (9)
  1. PRADAXA [Suspect]
     Active Substance: DABIGATRAN ETEXILATE MESYLATE
     Indication: Thrombosis prophylaxis
     Route: 048
     Dates: start: 2016, end: 20220510
  2. PRADAXA [Suspect]
     Active Substance: DABIGATRAN ETEXILATE MESYLATE
     Route: 048
     Dates: start: 20220613
  3. LOSARTAN [Concomitant]
     Active Substance: LOSARTAN
     Indication: Hypertension
     Route: 048
     Dates: start: 2012
  4. CLONAZEPAM [Concomitant]
     Active Substance: CLONAZEPAM
     Indication: Antidepressant therapy
     Dosage: AT NIGHT BEFORE BED.
     Route: 048
  5. CLONAZEPAM [Concomitant]
     Active Substance: CLONAZEPAM
     Indication: Anxiolytic therapy
  6. OXYGEN [Concomitant]
     Active Substance: OXYGEN
     Indication: Pulmonary fibrosis
     Dosage: FULL TIME OXYGEN
  7. QUETIAZIC [Concomitant]
     Indication: Product used for unknown indication
     Dosage: 25MG AT MORNING WITH BREAKFAST AND 100MG AT NIGHT, BEFORE BED
     Route: 048
  8. ZOLTUM [Concomitant]
     Indication: Product used for unknown indication
     Dosage: AT MORNING IN FASTING (BEFORE BREAKFAST)
     Route: 048
  9. OLODATEROL HYDROCHLORIDE\TIOTROPIUM BROMIDE MONOHYDRATE [Concomitant]
     Active Substance: OLODATEROL HYDROCHLORIDE\TIOTROPIUM BROMIDE MONOHYDRATE
     Indication: Pulmonary fibrosis
     Dosage: 2 PUFF AT EVENING PER DAY?SPIOLTO STRENGTH DOSE: 2.5/2.5 UG
     Route: 055
     Dates: start: 2017

REACTIONS (8)
  - Colon cancer [Unknown]
  - Intestinal ischaemia [Recovered/Resolved]
  - Melaena [Recovered/Resolved]
  - Haematochezia [Recovered/Resolved]
  - Poisoning [Recovered/Resolved]
  - Anaemia [Unknown]
  - Arrhythmia [Unknown]
  - Fluid retention [Unknown]

NARRATIVE: CASE EVENT DATE: 20220501
